FAERS Safety Report 5609396-6 (Version None)
Quarter: 2008Q1

REPORT INFORMATION
  Report Type: 
  Country: None (occurrence: None)
  Receive Date: 20080131
  Receipt Date: 20080123
  Transmission Date: 20080703
  Serious: Yes (Hospitalization)
  Sender: FDA-Public Use
  Company Number: DE-KINGPHARMUSA00001-K200800081

PATIENT

DRUGS (2)
  1. QUIBRON-T [Suspect]
     Indication: SUICIDE ATTEMPT
     Dosage: 24000 MG, (40 TABLET OF 600 MG EACH)
     Route: 048
  2. N-ACETYLCYSTEINE [Suspect]
     Indication: SUICIDE ATTEMPT
     Dosage: 6000 MG, (10 TABLETS OF 600 MG EACH)

REACTIONS (5)
  - FRUSTRATION [None]
  - LIVER FUNCTION TEST ABNORMAL [None]
  - POISONING [None]
  - SUICIDE ATTEMPT [None]
  - TACHYCARDIA [None]
